FAERS Safety Report 19933166 (Version 1)
Quarter: 2021Q4

REPORT INFORMATION
  Report Type: Spontaneous
  Country: CN (occurrence: CN)
  Receive Date: 20211008
  Receipt Date: 20211008
  Transmission Date: 20220303
  Serious: Yes (Hospitalization)
  Sender: FDA-Public Use
  Company Number: CN-JNJFOC-20210955856

PATIENT
  Age: 55 Year
  Sex: Male
  Weight: 75 kg

DRUGS (5)
  1. MOTRIN INFANTS [Suspect]
     Active Substance: IBUPROFEN
     Indication: Pyrexia
     Dosage: AS REQUIRED
     Route: 048
     Dates: start: 20210308, end: 20210310
  2. IBUPROFEN [Suspect]
     Active Substance: IBUPROFEN
     Indication: Pyrexia
     Dosage: MANUFACTURER: SINO-US TIANJIN SHIKE PHARMACEUTICAL CO., LTD.
     Route: 048
     Dates: start: 20210310, end: 20210311
  3. GANMAOLING 999 [Suspect]
     Active Substance: ACETAMINOPHEN\CAFFEINE\CHLORPHENIRAMINE MALEATE
     Indication: Pyrexia
     Route: 048
     Dates: start: 20210308, end: 20210311
  4. AMOXICILLIN [Suspect]
     Active Substance: AMOXICILLIN
     Indication: Pyrexia
     Dosage: 2 CAPSULES 3 DOSES 1 DAY
     Route: 048
     Dates: start: 20210308, end: 20210310
  5. LEVOFLOXACIN [Concomitant]
     Active Substance: LEVOFLOXACIN
     Indication: Pyrexia
     Dosage: DOSE 1, DAYS 1
     Route: 048
     Dates: start: 20210310, end: 20210311

REACTIONS (3)
  - Drug eruption [Recovering/Resolving]
  - Swelling [Recovering/Resolving]
  - Erythema [Recovering/Resolving]

NARRATIVE: CASE EVENT DATE: 20210301
